FAERS Safety Report 6382554-1 (Version None)
Quarter: 2009Q3

REPORT INFORMATION
  Report Type: 
  Country: None (occurrence: None)
  Receive Date: 20090930
  Receipt Date: 20090928
  Transmission Date: 20100115
  Serious: Yes (Other)
  Sender: FDA-Public Use
  Company Number: A0809316A

PATIENT
  Age: 67 Year
  Sex: Male

DRUGS (13)
  1. LOVAZA [Suspect]
     Dosage: 1G TWICE PER DAY
     Route: 048
     Dates: start: 20070101
  2. CRESTOR [Concomitant]
  3. PLAVIX [Concomitant]
  4. TOPROL-XL [Concomitant]
  5. TOPAMAX [Concomitant]
  6. LASIX [Concomitant]
  7. TRAMADOL HCL [Concomitant]
  8. OXYCONTIN [Concomitant]
  9. NITROGLYCERIN [Concomitant]
  10. ZETIA [Concomitant]
  11. RANEXA [Concomitant]
  12. CENTRUM [Concomitant]
  13. NITROGLYCERIN [Concomitant]

REACTIONS (5)
  - BLOOD PRESSURE INCREASED [None]
  - CONSTIPATION [None]
  - MYOCARDIAL INFARCTION [None]
  - OEDEMA PERIPHERAL [None]
  - PAIN [None]
